FAERS Safety Report 5274403-X (Version None)
Quarter: 2007Q1

REPORT INFORMATION
  Report Type: 
  Country: None (occurrence: None)
  Receive Date: 20070323
  Receipt Date: 20070313
  Transmission Date: 20070707
  Serious: Yes (Death)
  Sender: FDA-Public Use
  Company Number: JP-PFIZER INC-2007013916

PATIENT
  Sex: Male
  Weight: 60.7 kg

DRUGS (6)
  1. VFEND [Suspect]
     Indication: ASPERGILLOSIS
     Route: 042
  2. BACTRIM [Suspect]
     Indication: INTERSTITIAL LUNG DISEASE
     Route: 048
     Dates: start: 20070210, end: 20070226
  3. MICAFUNGIN [Concomitant]
     Route: 042
     Dates: start: 20070212, end: 20070214
  4. PASIL [Concomitant]
     Route: 042
     Dates: start: 20070212, end: 20070226
  5. MINOCYCLINE HCL [Concomitant]
     Route: 042
     Dates: start: 20070209, end: 20070212
  6. FINIBAX [Concomitant]
     Route: 042
     Dates: start: 20070209, end: 20070212

REACTIONS (3)
  - HYPERKALAEMIA [None]
  - HYPONATRAEMIA [None]
  - INTERSTITIAL LUNG DISEASE [None]
